FAERS Safety Report 9333432 (Version 4)
Quarter: 2013Q4

REPORT INFORMATION
  Report Type: Report from Study
  Country: FR (occurrence: FR)
  Receive Date: 20130606
  Receipt Date: 20131007
  Transmission Date: 20140711
  Serious: Yes (Hospitalization)
  Sender: FDA-Public Use
  Company Number: FR-ELI_LILLY_AND_COMPANY-FR201305008423

PATIENT
  Age: 70 Year
  Sex: Male
  Weight: 87 kg

DRUGS (10)
  1. PEMETREXED [Suspect]
     Indication: NON-SMALL CELL LUNG CANCER
     Dosage: 500 MG/M2, OTHER
     Dates: start: 20120814
  2. FOLIC ACID [Concomitant]
  3. VITAMIN B12 [Concomitant]
  4. DEXAMETHASONE [Concomitant]
  5. AMLODIPINE [Concomitant]
  6. CANDESARTAN CILEXETIL [Concomitant]
  7. CETIRIZINE [Concomitant]
  8. RABEPRAZOLE [Concomitant]
  9. ATORVASTATIN [Concomitant]
  10. BROMAZEPAN [Concomitant]

REACTIONS (3)
  - Aplasia pure red cell [Recovered/Resolved]
  - Epididymitis [Recovered/Resolved]
  - Leukopenia [Recovered/Resolved]
